FAERS Safety Report 5907872-X (Version None)
Quarter: 2008Q4

REPORT INFORMATION
  Report Type: 
  Country: None (occurrence: None)
  Receive Date: 20081003
  Receipt Date: 20080922
  Transmission Date: 20090506
  Serious: Yes (Death, Other)
  Sender: FDA-Public Use
  Company Number: JP-ROCHE-587555

PATIENT
  Age: 67 Year
  Sex: Female

DRUGS (10)
  1. GANCICLOVIR [Suspect]
     Route: 065
     Dates: start: 20040729, end: 20040808
  2. MEROPENEM [Suspect]
     Indication: DRUG USE FOR UNKNOWN INDICATION
     Route: 042
     Dates: start: 20040725, end: 20040808
  3. MEROPENEM [Suspect]
     Route: 042
  4. MICAFUNGIN [Suspect]
     Indication: DRUG USE FOR UNKNOWN INDICATION
     Route: 042
     Dates: start: 20040725, end: 20040808
  5. FLUCONAZOLE [Suspect]
     Indication: DRUG USE FOR UNKNOWN INDICATION
     Route: 065
  6. PREDNISOLONE [Concomitant]
  7. PREDNISOLONE [Concomitant]
  8. MIZORIBINE [Concomitant]
  9. METHYLPREDNISOLONE [Concomitant]
     Dates: start: 20040616, end: 20040618
  10. METHYLPREDNISOLONE [Concomitant]
     Dates: start: 20040623, end: 20040625

REACTIONS (4)
  - BRONCHOPULMONARY ASPERGILLOSIS [None]
  - CARDIAC FAILURE [None]
  - DISSEMINATED CRYPTOCOCCOSIS [None]
  - RENAL FAILURE [None]
